FAERS Safety Report 20576629 (Version 9)
Quarter: 2022Q3

REPORT INFORMATION
  Report Type: Report from Study
  Country: US (occurrence: US)
  Receive Date: 20220310
  Receipt Date: 20220711
  Transmission Date: 20221027
  Serious: Yes (Other)
  Sender: FDA-Public Use
  Company Number: US-NOVARTISTESTPH-NVSC2022US056357

PATIENT
  Sex: Male

DRUGS (1)
  1. ENTRESTO [Suspect]
     Active Substance: SACUBITRIL\VALSARTAN
     Indication: Cardiac failure
     Dosage: 1 DOSAGE FORM, BID (24/26 MG)
     Route: 048
     Dates: start: 20220228

REACTIONS (13)
  - Parkinson^s disease [Unknown]
  - Stomach mass [Unknown]
  - Weight decreased [Unknown]
  - Arthralgia [Unknown]
  - Constipation [Unknown]
  - Feeling abnormal [Unknown]
  - Chills [Unknown]
  - Fatigue [Unknown]
  - Hypersensitivity [Unknown]
  - Rhinorrhoea [Unknown]
  - Throat irritation [Unknown]
  - Cough [Unknown]
  - Dizziness [Unknown]
